FAERS Safety Report 7096612-X (Version None)
Quarter: 2010Q4

REPORT INFORMATION
  Report Type: 
  Country: None (occurrence: None)
  Receive Date: 20101111
  Receipt Date: 20101014
  Transmission Date: 20110411
  Serious: Yes (Hospitalization)
  Sender: FDA-Public Use
  Company Number: CZ-MERCK-1011USA01181

PATIENT
  Age: 67 Year
  Sex: Female

DRUGS (1)
  1. DECADRON [Suspect]
     Route: 048

REACTIONS (1)
  - PANCREATITIS ACUTE [None]
